FAERS Safety Report 5499151-2 (Version None)
Quarter: 2007Q4

REPORT INFORMATION
  Report Type: 
  Country: None (occurrence: None)
  Receive Date: 20071024
  Receipt Date: 20071017
  Transmission Date: 20080405
  Serious: Yes (Other)
  Sender: FDA-Public Use
  Company Number: CHPA2007US10966

PATIENT
  Age: 33 Year
  Sex: Female
  Weight: 37.2 kg

DRUGS (1)
  1. TRANSDERM SCOP [Suspect]
     Dosage: 1.5 MG, TRANSDERMAL
     Route: 062

REACTIONS (2)
  - CONVULSION [None]
  - OVERDOSE [None]
